FAERS Safety Report 9289866 (Version 1)
Quarter: 2013Q2

REPORT INFORMATION
  Report Type: Spontaneous
  Country: CA (occurrence: CA)
  Receive Date: 20130515
  Receipt Date: 20130515
  Transmission Date: 20140414
  Serious: Yes (Hospitalization, Other)
  Sender: FDA-Public Use
  Company Number: CA-AMGEN-CANSP2013011017

PATIENT
  Age: 14 Year
  Sex: Female
  Weight: 58 kg

DRUGS (2)
  1. NPLATE [Suspect]
     Indication: IDIOPATHIC THROMBOCYTOPENIC PURPURA
     Dosage: UNK
     Dates: start: 20130118, end: 201302
  2. NPLATE [Suspect]

REACTIONS (3)
  - Transient ischaemic attack [Unknown]
  - Platelet count increased [Recovered/Resolved]
  - Connective tissue disorder [Unknown]
